FAERS Safety Report 6039451-0 (Version None)
Quarter: 2009Q1

REPORT INFORMATION
  Report Type: 
  Country: None (occurrence: None)
  Receive Date: 20090114
  Receipt Date: 20081229
  Transmission Date: 20090719
  Serious: Yes (Hospitalization)
  Sender: FDA-Public Use
  Company Number: 8040794

PATIENT

DRUGS (9)
  1. KEPPRA [Suspect]
     Indication: CONVULSION
  2. NORVASC [Concomitant]
  3. ASPIRIN [Concomitant]
  4. DOCUSATE [Concomitant]
  5. LOVENOX [Concomitant]
  6. PEPCID [Concomitant]
  7. METOPROLOL [Concomitant]
  8. OXYBUTYNIN CHLORIDE [Concomitant]
  9. LAMISIL [Concomitant]

REACTIONS (2)
  - ILL-DEFINED DISORDER [None]
  - PYREXIA [None]
